FAERS Safety Report 9680347 (Version 2)
Quarter: 2013Q4

REPORT INFORMATION
  Report Type: Spontaneous
  Country: US (occurrence: US)
  Receive Date: 20131111
  Receipt Date: 20131117
  Transmission Date: 20140711
  Serious: No
  Sender: FDA-Public Use
  Company Number: US-009507513-1311USA000876

PATIENT
  Sex: 0
  Weight: 90.25 kg

DRUGS (1)
  1. NEXPLANON [Suspect]
     Dosage: 68 MG/ ONE ROD EVERY THREE YEARS
     Route: 059
     Dates: start: 20131101

REACTIONS (4)
  - Complication of device insertion [Unknown]
  - Injury associated with device [Unknown]
  - Needle issue [Unknown]
  - No adverse event [Unknown]
